FAERS Safety Report 23363912 (Version 2)
Quarter: 2024Q1

REPORT INFORMATION
  Report Type: Other
  Country: CA (occurrence: None)
  Receive Date: 20240104
  Receipt Date: 20240108
  Transmission Date: 20240410
  Serious: No
  Sender: FDA-Public Use
  Company Number: CA-ROCHE-3484631

PATIENT
  Sex: Female

DRUGS (2)
  1. OCREVUS [Suspect]
     Active Substance: OCRELIZUMAB
     Indication: Relapsing-remitting multiple sclerosis
     Dosage: 300 MG AT DAY 0 AND 14, THEN 600 MG EVERY 6 MONTHS
     Route: 042
     Dates: start: 20230620
  2. TRINTELLIX [Suspect]
     Active Substance: VORTIOXETINE HYDROBROMIDE
     Indication: Anxiety
     Route: 065

REACTIONS (4)
  - Oral herpes [Recovering/Resolving]
  - Headache [Not Recovered/Not Resolved]
  - Pain [Not Recovered/Not Resolved]
  - Anxiety [Recovering/Resolving]
